FAERS Safety Report 23471952 (Version 1)
Quarter: 2024Q1

REPORT INFORMATION
  Report Type: Spontaneous
  Country: SE (occurrence: SE)
  Receive Date: 20240202
  Receipt Date: 20240202
  Transmission Date: 20240409
  Serious: Yes (Hospitalization)
  Sender: FDA-Public Use
  Company Number: None

PATIENT
  Age: 59 Year
  Sex: Female

DRUGS (3)
  1. OLUMIANT [Suspect]
     Active Substance: BARICITINIB
     Indication: Anti-cyclic citrullinated peptide antibody positive
     Dosage: 4 MG, UNKNOWN
     Route: 065
     Dates: start: 20180904, end: 20240117
  2. OLUMIANT [Suspect]
     Active Substance: BARICITINIB
     Indication: Rheumatoid factor positive
  3. OLUMIANT [Suspect]
     Active Substance: BARICITINIB
     Indication: Arthritis

REACTIONS (1)
  - Pleurisy [Recovering/Resolving]

NARRATIVE: CASE EVENT DATE: 20231217
